FAERS Safety Report 8809404 (Version 2)
Quarter: 2012Q4

REPORT INFORMATION
  Report Type: 
  Country: AU (occurrence: AU)
  Receive Date: 20120926
  Receipt Date: 20121016
  Transmission Date: 20130627
  Serious: Yes (Hospitalization)
  Sender: FDA-Public Use
  Company Number: PHHY2012AU082338

PATIENT
  Age: 64 Year
  Sex: Female

DRUGS (3)
  1. ACLASTA [Suspect]
     Dosage: 5mg
     Route: 042
     Dates: start: 20090825
  2. ACLASTA [Suspect]
     Dosage: 5mg
     Route: 042
     Dates: start: 20110210
  3. ACLASTA [Suspect]
     Dosage: 5mg
     Route: 042
     Dates: start: 20120920

REACTIONS (9)
  - Road traffic accident [Recovered/Resolved]
  - Sternal fracture [Recovered/Resolved]
  - Rib fracture [Recovered/Resolved]
  - Patella fracture [Recovered/Resolved]
  - Lower limb fracture [Recovered/Resolved]
  - Foot fracture [Recovered/Resolved]
  - Joint injury [Recovered/Resolved]
  - Tendon rupture [Recovered/Resolved]
  - Ligament rupture [Recovered/Resolved]
